FAERS Safety Report 21221618 (Version 1)
Quarter: 2022Q3

REPORT INFORMATION
  Report Type: Spontaneous
  Country: US (occurrence: None)
  Receive Date: 20220816
  Receipt Date: 20220816
  Transmission Date: 20221027
  Serious: No
  Sender: FDA-Public Use
  Company Number: None

PATIENT
  Age: 35 Year
  Sex: Female
  Weight: 54 kg

DRUGS (9)
  1. PAXLOVID [Suspect]
     Active Substance: NIRMATRELVIR\RITONAVIR
     Indication: COVID-19
     Dosage: OTHER QUANTITY : 3 TABLET(S);?FREQUENCY : TWICE A DAY;?
     Route: 048
     Dates: start: 20220811, end: 20220815
  2. Benzonatate 100mg [Concomitant]
  3. capsule 2x/day for cough [Concomitant]
  4. acyclovir 400mg 2x/day [Concomitant]
  5. B-Complex 50mg 1x/day [Concomitant]
  6. Probiotics+prebiotics [Concomitant]
  7. cranberry supplement [Concomitant]
  8. Sudafed sinus 12hr [Concomitant]
  9. TYLENOL [Suspect]
     Active Substance: ACETAMINOPHEN

REACTIONS (3)
  - Gastrooesophageal reflux disease [None]
  - Dyspepsia [None]
  - Dysgeusia [None]

NARRATIVE: CASE EVENT DATE: 20220814
